FAERS Safety Report 17396461 (Version 1)
Quarter: 2020Q1

REPORT INFORMATION
  Report Type: Spontaneous
  Country: US (occurrence: US)
  Receive Date: 20200124
  Receipt Date: 20200124
  Transmission Date: 20200409
  Serious: Yes (Hospitalization)
  Sender: FDA-Public Use
  Company Number: None

PATIENT
  Age: 57 Year
  Sex: Female

DRUGS (1)
  1. RETACRIT [Suspect]
     Active Substance: EPOETIN ALFA-EPBX
     Indication: CARDIAC DISORDER
     Route: 058
     Dates: start: 20190604

REACTIONS (3)
  - Dyspnoea [None]
  - Hypotension [None]
  - Cardiac disorder [None]

NARRATIVE: CASE EVENT DATE: 20191206
